FAERS Safety Report 8172692-5 (Version None)
Quarter: 2012Q1

REPORT INFORMATION
  Report Type: 
  Country: None (occurrence: None)
  Receive Date: 20120229
  Receipt Date: 20120224
  Transmission Date: 20120608
  Serious: Yes (Other)
  Sender: FDA-Public Use
  Company Number: US-AMGEN-USASP2012012407

PATIENT
  Age: 13 Year

DRUGS (11)
  1. MESNA [Suspect]
     Indication: OSTEOSARCOMA METASTATIC
     Dosage: 560 MG/M2, PER CHEMO REGIM
     Route: 042
     Dates: start: 20040130
  2. DEXRAZOXANE HYDROCHLORIDE [Suspect]
     Indication: OSTEOSARCOMA METASTATIC
     Dosage: 347 MG/M2, PER CHEMO REGIM
     Route: 042
     Dates: start: 20040130
  3. TRASTUZUMAB [Suspect]
     Indication: OSTEOSARCOMA METASTATIC
     Dosage: 4 MG/KG, PER CHEMO REGIM
     Route: 042
     Dates: start: 20040130, end: 20040130
  4. CISPLATIN [Suspect]
     Indication: OSTEOSARCOMA METASTATIC
     Dosage: 60 MG/M2, PER CHEMO REGIM
     Route: 042
     Dates: start: 20040130
  5. METHOTREXATE [Suspect]
     Indication: OSTEOSARCOMA METASTATIC
     Dosage: 12 MG/M2, PER CHEMO REGIM
     Route: 042
     Dates: start: 20040130
  6. MESNA [Suspect]
     Dosage: 560 MG/M2, UNK
     Route: 042
  7. DOXORUBICIN HCL [Suspect]
     Indication: OSTEOSARCOMA METASTATIC
     Dosage: 37.5 MG/M2, PER CHEMO REGIM
     Route: 042
     Dates: start: 20040130
  8. POTASSIUM CHLORIDE [Concomitant]
     Route: 042
  9. TRASTUZUMAB [Suspect]
     Dosage: 2 MG/KG, QWK
     Route: 042
  10. FILGRASTIM [Suspect]
     Indication: OSTEOSARCOMA METASTATIC
     Dosage: 5 MUG/KG, UNK
     Route: 058
     Dates: start: 20040130
  11. IFOSFAMIDE [Suspect]
     Indication: OSTEOSARCOMA METASTATIC
     Dosage: 2.8 G/M2, PER CHEMO REGIM
     Route: 042
     Dates: start: 20040130

REACTIONS (4)
  - ASPARTATE AMINOTRANSFERASE INCREASED [None]
  - ALANINE AMINOTRANSFERASE INCREASED [None]
  - HYPOMAGNESAEMIA [None]
  - HYPOKALAEMIA [None]
